FAERS Safety Report 11583067 (Version 1)
Quarter: 2015Q4

REPORT INFORMATION
  Report Type: Spontaneous
  Country: US (occurrence: US)
  Receive Date: 20151001
  Receipt Date: 20151001
  Transmission Date: 20160304
  Serious: No
  Sender: FDA-Public Use
  Company Number: US-ROCHE-700433

PATIENT
  Age: 53 Year
  Sex: Male

DRUGS (3)
  1. RIBAVIRIN. [Suspect]
     Active Substance: RIBAVIRIN
     Indication: HEPATITIS C
     Route: 048
  2. RIBAVIRIN. [Suspect]
     Active Substance: RIBAVIRIN
     Dosage: DIVIDED DOSES, DOSAGE REDUCED
     Route: 048
  3. PEGASYS [Suspect]
     Active Substance: PEGINTERFERON ALFA-2A
     Indication: HEPATITIS C
     Dosage: FORM: PRE-FILLED SYRINGE
     Route: 058
     Dates: start: 20091110, end: 20100421

REACTIONS (16)
  - Dyspnoea [Unknown]
  - Ill-defined disorder [Not Recovered/Not Resolved]
  - Pain [Unknown]
  - Noninfective gingivitis [Not Recovered/Not Resolved]
  - Drug ineffective [Unknown]
  - Insomnia [Unknown]
  - Blood count abnormal [Not Recovered/Not Resolved]
  - Red blood cell count decreased [Unknown]
  - White blood cell count decreased [Unknown]
  - Depression [Unknown]
  - Toothache [Not Recovered/Not Resolved]
  - Sleep disorder [Unknown]
  - Viral skin infection [Unknown]
  - Device failure [Unknown]
  - Quality of life decreased [Not Recovered/Not Resolved]
  - Gingival pain [Recovering/Resolving]

NARRATIVE: CASE EVENT DATE: 20091110
